FAERS Safety Report 21784521 (Version 1)
Quarter: 2022Q4

REPORT INFORMATION
  Report Type: Spontaneous
  Country: PL (occurrence: PL)
  Receive Date: 20221227
  Receipt Date: 20221227
  Transmission Date: 20230113
  Serious: Yes (Other)
  Sender: FDA-Public Use
  Company Number: PL-TEVA-2022-PL-2840390

PATIENT
  Age: 63 Year
  Sex: Female

DRUGS (6)
  1. PERINDOPRIL ERBUMINE [Suspect]
     Active Substance: PERINDOPRIL ERBUMINE
     Indication: Product used for unknown indication
     Dosage: 5 MG 1X1, 1/2 TAB
     Route: 065
  2. TORSEMIDE [Suspect]
     Active Substance: TORSEMIDE
     Indication: Product used for unknown indication
     Route: 065
  3. BISOPROLOL FUMARATE [Suspect]
     Active Substance: BISOPROLOL FUMARATE
     Indication: Product used for unknown indication
     Dosage: 5 MG
     Route: 065
  4. LEVOTHYROXINE [Concomitant]
     Active Substance: LEVOTHYROXINE
     Indication: Product used for unknown indication
     Dosage: 100 1X1
     Route: 065
  5. ROSUVASTATIN [Concomitant]
     Active Substance: ROSUVASTATIN
     Indication: Product used for unknown indication
     Dosage: 20 MG
     Route: 065
  6. POTASSIUM [Concomitant]
     Active Substance: POTASSIUM
     Indication: Product used for unknown indication
     Dosage: 1 TAB
     Route: 065

REACTIONS (10)
  - Arrhythmia [Unknown]
  - Feeling abnormal [Unknown]
  - Hypertension [Unknown]
  - Peripheral swelling [Recovering/Resolving]
  - Blood cholesterol abnormal [Unknown]
  - Blood glucose abnormal [Unknown]
  - Glucose tolerance test abnormal [Unknown]
  - High density lipoprotein abnormal [Unknown]
  - Low density lipoprotein abnormal [Unknown]
  - Blood triglycerides abnormal [Unknown]

NARRATIVE: CASE EVENT DATE: 20220101
